FAERS Safety Report 11039702 (Version 1)
Quarter: 2015Q2

REPORT INFORMATION
  Report Type: Spontaneous
  Country: US (occurrence: US)
  Receive Date: 20150416
  Receipt Date: 20150416
  Transmission Date: 20150821
  Serious: No
  Sender: FDA-Public Use
  Company Number: US-009507513-1504USA005107

PATIENT
  Sex: Female

DRUGS (1)
  1. PROVENTIL [Suspect]
     Active Substance: ALBUTEROL
     Indication: PROPHYLAXIS AGAINST BRONCHOSPASM
     Dosage: 90 MICROGRAM, UNKNOWN FREQUENCY
     Route: 055

REACTIONS (3)
  - Product taste abnormal [Unknown]
  - Dysgeusia [Not Recovered/Not Resolved]
  - Product quality issue [Unknown]
